FAERS Safety Report 13765433 (Version 1)
Quarter: 2017Q3

REPORT INFORMATION
  Report Type: Spontaneous
  Country: GB (occurrence: GB)
  Receive Date: 20170718
  Receipt Date: 20170718
  Transmission Date: 20171127
  Serious: Yes (Other)
  Sender: FDA-Public Use
  Company Number: GB-PFIZER INC-348923

PATIENT
  Sex: Female
  Weight: 50 kg

DRUGS (4)
  1. ERYTHROMYCIN. [Suspect]
     Active Substance: ERYTHROMYCIN
     Indication: ACNE
     Dosage: 250 MG, UNK
     Route: 048
     Dates: start: 20090601, end: 20090609
  2. CITALOPRAM [Suspect]
     Active Substance: CITALOPRAM HYDROBROMIDE
     Indication: ANXIETY
     Dosage: 10 MG, STARTING WEEK 2
     Route: 048
  3. CITALOPRAM [Suspect]
     Active Substance: CITALOPRAM HYDROBROMIDE
     Dosage: 15 MG, STARTING WEEK 3
     Route: 048
     Dates: end: 20090709
  4. CITALOPRAM [Suspect]
     Active Substance: CITALOPRAM HYDROBROMIDE
     Dosage: 5 MG, STARTING WEEK 1
     Route: 048
     Dates: start: 20090601

REACTIONS (1)
  - Serotonin syndrome [Recovered/Resolved]

NARRATIVE: CASE EVENT DATE: 20090706
